FAERS Safety Report 8049196-3 (Version None)
Quarter: 2011Q4

REPORT INFORMATION
  Report Type: 
  Country: None (occurrence: None)
  Receive Date: 20111209
  Receipt Date: 20110824
  Transmission Date: 20120403
  Serious: No
  Sender: FDA-Public Use
  Company Number: TH-2011-00353

PATIENT
  Sex: Male

DRUGS (2)
  1. METFORMIN HCL [Concomitant]
  2. EGRIFTA [Suspect]
     Indication: LIPODYSTROPHY ACQUIRED
     Dosage: SUBCUTANEOUS
     Route: 058

REACTIONS (4)
  - WEIGHT INCREASED [None]
  - ABDOMINAL TENDERNESS [None]
  - ABDOMINAL DISTENSION [None]
  - INJECTION SITE HAEMATOMA [None]
